FAERS Safety Report 20670472 (Version 2)
Quarter: 2022Q3

REPORT INFORMATION
  Report Type: Spontaneous
  Country: US (occurrence: US)
  Receive Date: 20220404
  Receipt Date: 20220824
  Transmission Date: 20221027
  Serious: Yes (Death)
  Sender: FDA-Public Use
  Company Number: US-MACROGENICS-2022000086

PATIENT
  Sex: Female

DRUGS (1)
  1. MARGENZA [Suspect]
     Active Substance: MARGETUXIMAB-CMKB
     Indication: HER2 positive breast cancer
     Route: 065

REACTIONS (1)
  - Death [Fatal]
